FAERS Safety Report 10875076 (Version 2)
Quarter: 2015Q1

REPORT INFORMATION
  Report Type: Spontaneous
  Country: US (occurrence: US)
  Receive Date: 20150227
  Receipt Date: 20150327
  Transmission Date: 20150721
  Serious: No
  Sender: FDA-Public Use
  Company Number: US-009507513-1502USA007060

PATIENT
  Sex: Male
  Weight: 24.1 kg

DRUGS (1)
  1. PEGINTRON [Suspect]
     Active Substance: PEGINTERFERON ALFA-2B
     Indication: CRANIOPHARYNGIOMA
     Dosage: 0.5ML(14MG)/ONCE A WEEK, ROUTE: INJECTION, STRENGTH 80/0.5
     Route: 030
     Dates: start: 20150130

REACTIONS (3)
  - Accidental exposure to product [Unknown]
  - Product quality issue [Unknown]
  - No adverse event [Unknown]

NARRATIVE: CASE EVENT DATE: 2015
